FAERS Safety Report 5133454-6 (Version None)
Quarter: 2006Q4

REPORT INFORMATION
  Report Type: 
  Country: None (occurrence: None)
  Receive Date: 20061018
  Receipt Date: 20061003
  Transmission Date: 20070319
  Serious: Yes (Death)
  Sender: FDA-Public Use
  Company Number: 2006JP003614

PATIENT
  Age: 57 Year
  Sex: Male

DRUGS (2)
  1. PROGRAF [Suspect]
     Indication: STEM CELL TRANSPLANT
  2. METHOTREXATE [Concomitant]

REACTIONS (2)
  - NEOPLASM RECURRENCE [None]
  - PNEUMONIA FUNGAL [None]
